FAERS Safety Report 4314634-6 (Version None)
Quarter: 2004Q1

REPORT INFORMATION
  Report Type: 
  Country: None (occurrence: None)
  Receive Date: 20040308
  Receipt Date: 20040217
  Transmission Date: 20041129
  Serious: Yes (Hospitalization)
  Sender: FDA-Public Use
  Company Number: DSA_23270_2003

PATIENT
  Age: 3 Year
  Sex: Female

DRUGS (1)
  1. ISOCEF [Suspect]
     Indication: PHARYNGITIS
     Dosage: 160 MG Q DAY PO
     Route: 048
     Dates: start: 20030721, end: 20030724

REACTIONS (3)
  - BLOOD IMMUNOGLOBULIN E INCREASED [None]
  - FACE OEDEMA [None]
  - RASH [None]
